FAERS Safety Report 9679193 (Version 1)
Quarter: 2013Q4

REPORT INFORMATION
  Report Type: Spontaneous
  Country: DE (occurrence: None)
  Receive Date: 20131107
  Receipt Date: 20131107
  Transmission Date: 20140711
  Serious: Yes (Other)
  Sender: FDA-Public Use
  Company Number: AUR-APL-2013-09287

PATIENT
  Age: 77 Year
  Sex: Female
  Weight: 85 kg

DRUGS (6)
  1. METFORMIN [Suspect]
     Indication: DIABETES MELLITUS
     Dates: end: 201308
  2. SIMVASTATIN (SIMVASTATIN) [Suspect]
     Dates: end: 201308
  3. PRADAXA (DABIGATRAN ETEXILATE MESILATE) [Suspect]
     Dates: start: 201111, end: 201308
  4. VILDAGLIPTIN [Suspect]
     Dates: end: 201308
  5. CONCOR (BISOPROLOL FUMARATE) [Concomitant]
  6. THYROXINE (LEVOTHYROXINE SODIUM) [Concomitant]

REACTIONS (2)
  - Pemphigoid [None]
  - Hepatic enzyme increased [None]
